FAERS Safety Report 18136092 (Version 2)
Quarter: 2020Q3

REPORT INFORMATION
  Report Type: Spontaneous
  Country: US (occurrence: US)
  Receive Date: 20200811
  Receipt Date: 20200910
  Transmission Date: 20201103
  Serious: No
  Sender: FDA-Public Use
  Company Number: US-ASCEND THERAPEUTICS US, LLC-2088468

PATIENT
  Age: 57 Year
  Sex: Female

DRUGS (5)
  1. ESTROGEL [Suspect]
     Active Substance: ESTRADIOL
     Indication: PRODUCT USED FOR UNKNOWN INDICATION
     Route: 061
     Dates: start: 2019
  2. PROGESTERONE. [Suspect]
     Active Substance: PROGESTERONE
     Route: 048
     Dates: start: 2019
  3. ESTROGEL [Suspect]
     Active Substance: ESTRADIOL
  4. ESTROGEL [Suspect]
     Active Substance: ESTRADIOL
     Route: 061
     Dates: start: 2019
  5. DUAVEE [Concomitant]
     Active Substance: BAZEDOXIFENE ACETATE\ESTROGENS, CONJUGATED
     Route: 065

REACTIONS (2)
  - Cognitive disorder [Unknown]
  - Depression [Unknown]
